FAERS Safety Report 9630348 (Version 1)
Quarter: 2013Q4

REPORT INFORMATION
  Report Type: Spontaneous
  Country: FR (occurrence: FR)
  Receive Date: 20131018
  Receipt Date: 20131018
  Transmission Date: 20140711
  Serious: Yes (Hospitalization)
  Sender: FDA-Public Use
  Company Number: FR-ROCHE-1288269

PATIENT
  Age: 63 Year
  Sex: Male

DRUGS (1)
  1. ZELBORAF [Suspect]
     Indication: PRODUCT USED FOR UNKNOWN INDICATION
     Dosage: 240MG
     Route: 065
     Dates: start: 20130719, end: 20130913

REACTIONS (8)
  - Photosensitivity reaction [Recovered/Resolved]
  - Dermatitis exfoliative [Recovered/Resolved]
  - Oedema peripheral [Recovered/Resolved]
  - Squamous cell carcinoma [Unknown]
  - Hyperkeratosis [Recovered/Resolved]
  - Lymphopenia [Not Recovered/Not Resolved]
  - Eosinophilia [Recovering/Resolving]
  - Cholestasis [Recovering/Resolving]
